FAERS Safety Report 6655944-7 (Version None)
Quarter: 2010Q1

REPORT INFORMATION
  Report Type: 
  Country: None (occurrence: None)
  Receive Date: 20100329
  Receipt Date: 20100318
  Transmission Date: 20100710
  Serious: Yes (Hospitalization, Other)
  Sender: FDA-Public Use
  Company Number: PHHY2010MX06817

PATIENT
  Age: 66 Year
  Sex: Female

DRUGS (10)
  1. ZELMAC [Suspect]
     Indication: IRRITABLE BOWEL SYNDROME
     Dosage: 2 TABLETS (6 MG) DAILY
     Route: 048
     Dates: start: 20060801, end: 20061001
  2. ZELMAC [Suspect]
     Dosage: UNK
     Route: 048
     Dates: start: 20100101, end: 20100125
  3. ZELMAC [Suspect]
     Dosage: UNK
     Route: 048
     Dates: start: 20100309
  4. PANTOPRAZOL [Concomitant]
  5. PANTOPRAZOLE [Concomitant]
  6. PINAVERIUM BROMIDE [Concomitant]
  7. ATACAND [Concomitant]
     Dosage: UNK
  8. NEXIUM [Concomitant]
     Dosage: UNK
     Dates: start: 20091201
  9. NEXIUM [Concomitant]
     Dosage: UNK
     Dates: start: 20100309
  10. NORVASC [Concomitant]
     Dosage: UNK

REACTIONS (7)
  - ABDOMINAL PAIN UPPER [None]
  - CARDIOMEGALY [None]
  - DIARRHOEA [None]
  - GASTRITIS [None]
  - HYPERTENSION [None]
  - IRRITABLE BOWEL SYNDROME [None]
  - VOMITING [None]
